FAERS Safety Report 12190893 (Version 1)
Quarter: 2016Q1

REPORT INFORMATION
  Report Type: Spontaneous
  Country: CH (occurrence: CH)
  Receive Date: 20160318
  Receipt Date: 20160318
  Transmission Date: 20160526
  Serious: Yes (Other)
  Sender: FDA-Public Use
  Company Number: CH-PFIZER INC-2016161150

PATIENT
  Age: 72 Year
  Sex: Male

DRUGS (3)
  1. AMIODARONE HCL [Suspect]
     Active Substance: AMIODARONE HYDROCHLORIDE
     Indication: ARRHYTHMIA
     Dosage: 200 MG, UNK
  2. CORDARONE [Suspect]
     Active Substance: AMIODARONE HYDROCHLORIDE
     Indication: ARRHYTHMIA
     Dosage: 200 MG, 3X/DAY
     Dates: start: 20110616, end: 20110622
  3. LISINOPRIL. [Concomitant]
     Active Substance: LISINOPRIL
     Dosage: UNK

REACTIONS (5)
  - Pain [Unknown]
  - Disturbance in attention [Unknown]
  - Vision blurred [Unknown]
  - Balance disorder [Unknown]
  - Polyneuropathy [Unknown]

NARRATIVE: CASE EVENT DATE: 201407
